FAERS Safety Report 8850674 (Version 1)
Quarter: 2012Q4

REPORT INFORMATION
  Report Type: 
  Country: US (occurrence: US)
  Receive Date: 20121019
  Receipt Date: 20121019
  Transmission Date: 20130627
  Serious: No
  Sender: FDA-Public Use
  Company Number: US-ASTRAZENECA-2012SE78606

PATIENT
  Age: 67 Year
  Sex: Female

DRUGS (3)
  1. TOPROL XL [Suspect]
     Indication: BLOOD PRESSURE
     Route: 048
     Dates: start: 1990, end: 20120910
  2. METOPROLOL SUCCINATE [Suspect]
     Indication: BLOOD PRESSURE
     Dosage: GENERIC
     Route: 065
     Dates: start: 20120910
  3. BENICAR [Concomitant]
     Indication: BLOOD PRESSURE

REACTIONS (2)
  - Pain in extremity [Recovering/Resolving]
  - Oedema peripheral [Recovering/Resolving]
